FAERS Safety Report 7459363-5 (Version None)
Quarter: 2011Q2

REPORT INFORMATION
  Report Type: 
  Country: None (occurrence: None)
  Receive Date: 20110505
  Receipt Date: 20110421
  Transmission Date: 20111010
  Serious: No
  Sender: FDA-Public Use
  Company Number: US-B.I. PHARMACEUTICALS,INC./RIDGEFIELD-2011-BP-11458BP

PATIENT
  Sex: Male

DRUGS (7)
  1. DIGOXIN [Concomitant]
     Indication: CARDIAC DISORDER
     Dosage: 0.125 MG
  2. METOPROLOL SUCCINATE [Concomitant]
     Indication: CARDIAC DISORDER
     Dosage: 100 MG
  3. FLOMAX [Concomitant]
     Indication: BENIGN PROSTATIC HYPERPLASIA
     Dosage: 0.4 MG
  4. HYDRALAZINE HCL [Concomitant]
     Indication: CARDIAC DISORDER
     Dosage: 25 MG
  5. LASIX [Concomitant]
     Indication: CARDIAC DISORDER
     Dosage: 20 MG
  6. PRADAXA [Suspect]
     Indication: ATRIAL FIBRILLATION
     Dosage: 150 MG
     Route: 048
     Dates: start: 20101120
  7. TEKTURNA [Concomitant]
     Indication: CARDIAC DISORDER
     Dosage: 75 MG

REACTIONS (5)
  - NAUSEA [None]
  - EPISTAXIS [None]
  - DIZZINESS [None]
  - ASTHENIA [None]
  - VISION BLURRED [None]
